FAERS Safety Report 5673130-4 (Version None)
Quarter: 2008Q1

REPORT INFORMATION
  Report Type: 
  Country: None (occurrence: None)
  Receive Date: 20080317
  Receipt Date: 20080303
  Transmission Date: 20080703
  Serious: Yes (Hospitalization)
  Sender: FDA-Public Use
  Company Number: 2008BI001762

PATIENT
  Age: 47 Year
  Sex: Female

DRUGS (1)
  1. TYSABRI [Suspect]
     Indication: MULTIPLE SCLEROSIS
     Dosage: 300 MG QM IV
     Route: 042
     Dates: start: 20050105, end: 20071219

REACTIONS (5)
  - ADENOCARCINOMA PANCREAS [None]
  - GALLBLADDER OBSTRUCTION [None]
  - INTRA-ABDOMINAL HAEMORRHAGE [None]
  - JAUNDICE [None]
  - POST PROCEDURAL HAEMORRHAGE [None]
